FAERS Safety Report 17474961 (Version 7)
Quarter: 2021Q4

REPORT INFORMATION
  Report Type: Spontaneous
  Country: US (occurrence: US)
  Receive Date: 20200228
  Receipt Date: 20211006
  Transmission Date: 20220303
  Serious: Yes (Other)
  Sender: FDA-Public Use
  Company Number: US-PFIZER INC-2020089317

PATIENT
  Age: 65 Year
  Sex: Female
  Weight: 68.95 kg

DRUGS (2)
  1. XELJANZ XR [Suspect]
     Active Substance: TOFACITINIB CITRATE
     Indication: Rheumatoid arthritis
     Dosage: 11 MG, 1X/DAY
     Route: 048
     Dates: end: 202010
  2. COLCHICINE [Concomitant]
     Active Substance: COLCHICINE
     Dosage: UNK

REACTIONS (14)
  - Cataract [Unknown]
  - Back disorder [Unknown]
  - Circumstance or information capable of leading to medication error [Unknown]
  - Pain in extremity [Unknown]
  - Peripheral swelling [Unknown]
  - Skin discolouration [Unknown]
  - Sinusitis [Unknown]
  - Gait disturbance [Unknown]
  - Mobility decreased [Unknown]
  - Malaise [Unknown]
  - Illness [Unknown]
  - Stress [Unknown]
  - Condition aggravated [Unknown]
  - Vertigo [Unknown]

NARRATIVE: CASE EVENT DATE: 20201001
